FAERS Safety Report 10182893 (Version 2)
Quarter: 2014Q2

REPORT INFORMATION
  Report Type: Report from Study
  Country: JP (occurrence: JP)
  Receive Date: 20140520
  Receipt Date: 20140520
  Transmission Date: 20141212
  Serious: Yes (Death, Other)
  Sender: FDA-Public Use
  Company Number: JP-SA-2014SA064558

PATIENT
  Age: 68 Year
  Sex: Male

DRUGS (5)
  1. DOCETAXEL [Suspect]
     Indication: ADENOCARCINOMA
     Dosage: INFUSION; LEVEL 2
     Route: 042
  2. DOCETAXEL [Suspect]
     Indication: ADENOCARCINOMA
     Dosage: INFUSION; LEVEL 2
     Route: 042
  3. DOCETAXEL [Suspect]
     Indication: ADENOCARCINOMA
     Dosage: INFUSION; LEVEL 2
     Route: 042
  4. DOCETAXEL [Suspect]
     Indication: ADENOCARCINOMA
     Dosage: INFUSION; LEVEL 1
     Route: 042
  5. DOCETAXEL [Suspect]
     Indication: ADENOCARCINOMA
     Dosage: INFUSION; LEVEL 2
     Route: 042

REACTIONS (3)
  - Interstitial lung disease [Fatal]
  - Febrile neutropenia [Recovered/Resolved]
  - Gastric haemorrhage [Unknown]
